FAERS Safety Report 8282866-0 (Version None)
Quarter: 2012Q2

REPORT INFORMATION
  Report Type: 
  Country: None (occurrence: None)
  Receive Date: 20120411
  Receipt Date: 20120327
  Transmission Date: 20120825
  Serious: Yes (Other)
  Sender: FDA-Public Use
  Company Number: US-1191382

PATIENT
  Age: 71 Year
  Sex: Female
  Weight: 69.8539 kg

DRUGS (4)
  1. COREG [Concomitant]
  2. TRAVATAN [Suspect]
     Indication: GLAUCOMA
     Dosage: (OPHTHALMIC)
     Route: 047
     Dates: end: 20120201
  3. ASPIRIN [Concomitant]
  4. XALATAN [Concomitant]

REACTIONS (3)
  - IRIS HYPERPIGMENTATION [None]
  - SINUSITIS [None]
  - HYPERSENSITIVITY [None]
